FAERS Safety Report 8704906 (Version 2)
Quarter: 2013Q3

REPORT INFORMATION
  Report Type: Spontaneous
  Country: US (occurrence: US)
  Receive Date: 20120803
  Receipt Date: 20130816
  Transmission Date: 20140515
  Serious: No
  Sender: FDA-Public Use
  Company Number: US-BRISTOL-MYERS SQUIBB COMPANY-16726036

PATIENT
  Age: 48 Year
  Sex: Male
  Weight: 63.49 kg

DRUGS (1)
  1. GLUCOVANCE [Suspect]
     Indication: DIABETES MELLITUS
     Dosage: 1DF=5/500MG(180 COUNT)
     Route: 048
     Dates: start: 20120514

REACTIONS (1)
  - Blood glucose increased [Unknown]
